FAERS Safety Report 21325633 (Version 1)
Quarter: 2022Q3

REPORT INFORMATION
  Report Type: Spontaneous
  Country: None (occurrence: GB)
  Receive Date: 20220912
  Receipt Date: 20220912
  Transmission Date: 20221026
  Serious: Yes (Other)
  Sender: FDA-Public Use
  Company Number: GB-Ascend Therapeutics US, LLC-2132787

PATIENT
  Age: 50 Year
  Sex: Female
  Weight: 101 kg

DRUGS (14)
  1. ESTROGEL [Suspect]
     Active Substance: ESTRADIOL
     Indication: Product used for unknown indication
     Route: 065
     Dates: start: 20220824
  2. ESTROGEL [Suspect]
     Active Substance: ESTRADIOL
  3. ESTRADIOL [Suspect]
     Active Substance: ESTRADIOL
     Route: 065
     Dates: start: 20220824
  4. ESTRADIOL [Concomitant]
     Active Substance: ESTRADIOL
     Route: 065
     Dates: start: 20220420
  5. DULOXETINE [Concomitant]
     Active Substance: DULOXETINE
     Route: 065
     Dates: start: 20220420
  6. FEXOFENADINE [Concomitant]
     Active Substance: FEXOFENADINE HYDROCHLORIDE
     Route: 065
     Dates: start: 20220420
  7. LANSOPRAZOLE [Concomitant]
     Active Substance: LANSOPRAZOLE
     Route: 065
     Dates: start: 20220527, end: 20220624
  8. LENZETTO(ESTRADIOL HEMIHYDRATE) [Concomitant]
     Route: 065
     Dates: start: 20220527, end: 20220824
  9. NAPROXEN [Concomitant]
     Active Substance: NAPROXEN
     Route: 065
     Dates: start: 20220527, end: 20220624
  10. PRAMIPEXOLE [Concomitant]
     Active Substance: PRAMIPEXOLE
     Route: 065
     Dates: start: 20220420
  11. SODIUM FUSIDATE(FUSIDATE SODIUM) [Concomitant]
     Route: 065
     Dates: start: 20220805, end: 20220812
  12. UTROGESTAN [Concomitant]
     Active Substance: PROGESTERONE
     Route: 065
     Dates: start: 20220420, end: 20220824
  13. ZAPAIN(CODEINE PHOSPHATE, PARACETAMOL) [Concomitant]
     Route: 065
     Dates: start: 20220420
  14. ZAPAIN(CODEINE PHOSPHATE, PARACETAMOL) [Concomitant]
     Route: 065
     Dates: start: 20220420

REACTIONS (2)
  - Vulval ulceration [Recovered/Resolved]
  - Drug hypersensitivity [Unknown]
